FAERS Safety Report 8429476-X (Version None)
Quarter: 2012Q2

REPORT INFORMATION
  Report Type: 
  Country: None (occurrence: None)
  Receive Date: 20120612
  Receipt Date: 20120504
  Transmission Date: 20120825
  Serious: No
  Sender: FDA-Public Use
  Company Number: US-JNJFOC-20120506930

PATIENT
  Age: 49 Year
  Sex: Female
  Weight: 90.72 kg

DRUGS (6)
  1. MOBIC [Concomitant]
     Route: 065
  2. CELEXA [Concomitant]
     Route: 065
  3. DIAZEPAM [Concomitant]
     Route: 065
  4. INVEGA SUSTENNA [Suspect]
     Indication: SCHIZOAFFECTIVE DISORDER
     Route: 030
  5. COLACE [Concomitant]
     Route: 065
  6. GABAPENTIN [Concomitant]
     Route: 065

REACTIONS (1)
  - INJECTION SITE MASS [None]
